FAERS Safety Report 7852615-6 (Version None)
Quarter: 2011Q4

REPORT INFORMATION
  Report Type: 
  Country: None (occurrence: None)
  Receive Date: 20111026
  Receipt Date: 20111021
  Transmission Date: 20120403
  Serious: Yes (Death)
  Sender: FDA-Public Use
  Company Number: US-GLAXOSMITHKLINE-A0950045A

PATIENT
  Age: 75 Year
  Sex: Male

DRUGS (2)
  1. REQUIP [Suspect]
     Indication: PARKINSON'S DISEASE
     Dosage: .5MG PER DAY
     Route: 065
  2. MULTIPLE MEDICATIONS [Concomitant]

REACTIONS (3)
  - DIABETIC COMPLICATION [None]
  - CHRONIC OBSTRUCTIVE PULMONARY DISEASE [None]
  - PARKINSON'S DISEASE [None]
